FAERS Safety Report 8058967-9 (Version None)
Quarter: 2012Q1

REPORT INFORMATION
  Report Type: 
  Country: None (occurrence: None)
  Receive Date: 20120111
  Receipt Date: 20111228
  Transmission Date: 20120608
  Serious: Yes (Hospitalization, Other)
  Sender: FDA-Public Use
  Company Number: 2011MA018097

PATIENT
  Age: 2 Year
  Sex: Male

DRUGS (6)
  1. ACYCLOVIR [Suspect]
     Indication: PYREXIA
     Dosage: 60 MG/KG/DAY, IV
     Route: 042
  2. ACYCLOVIR [Suspect]
     Indication: VOMITING
     Dosage: 60 MG/KG/DAY, IV
     Route: 042
  3. ACYCLOVIR [Suspect]
     Indication: GRAND MAL CONVULSION
     Dosage: 60 MG/KG/DAY, IV
     Route: 042
  4. CEFTRIAXONE [Suspect]
     Indication: GRAND MAL CONVULSION
     Dosage: 100 MG/KG/DAY, IV
     Route: 042
  5. CEFTRIAXONE [Suspect]
     Indication: PYREXIA
     Dosage: 100 MG/KG/DAY, IV
     Route: 042
  6. CEFTRIAXONE [Suspect]
     Indication: VOMITING
     Dosage: 100 MG/KG/DAY, IV
     Route: 042

REACTIONS (9)
  - ALTERED STATE OF CONSCIOUSNESS [None]
  - DISEASE RECURRENCE [None]
  - ELECTROENCEPHALOGRAM ABNORMAL [None]
  - HYPOREFLEXIA [None]
  - PYREXIA [None]
  - DYSTONIA [None]
  - OPISTHOTONUS [None]
  - BLOOD IMMUNOGLOBULIN M INCREASED [None]
  - CHOREOATHETOSIS [None]
